FAERS Safety Report 4843605-6 (Version None)
Quarter: 2005Q4

REPORT INFORMATION
  Report Type: 
  Country: None (occurrence: None)
  Receive Date: 20051125
  Receipt Date: 20051111
  Transmission Date: 20060501
  Serious: Yes (Hospitalization)
  Sender: FDA-Public Use
  Company Number: US200511000096

PATIENT
  Age: 13 Year
  Sex: Male

DRUGS (2)
  1. HUMATROPE [Suspect]
     Dosage: 2.4 MG, 6/W
     Dates: start: 19950101
  2. HUMATROPEN               (HUMATROPEN) [Concomitant]

REACTIONS (2)
  - DEHYDRATION [None]
  - PHARMACEUTICAL PRODUCT COMPLAINT [None]
